FAERS Safety Report 8516439-9 (Version None)
Quarter: 2012Q3

REPORT INFORMATION
  Report Type: 
  Country: None (occurrence: None)
  Receive Date: 20120718
  Receipt Date: 20120709
  Transmission Date: 20120928
  Serious: No
  Sender: FDA-Public Use
  Company Number: US-009507513-1207USA002999

PATIENT

DRUGS (10)
  1. ACTOS [Concomitant]
     Dosage: 1 DF, BID
     Route: 048
  2. ZOCOR [Suspect]
     Route: 048
  3. NEURONTIN [Concomitant]
  4. LANTUS [Concomitant]
     Dosage: 10 IU, QD
     Route: 058
  5. LISINOPRIL [Concomitant]
     Dosage: 1 DF, QD
     Route: 048
  6. TRICOR [Suspect]
  7. CELEBREX [Concomitant]
     Dosage: 1 DF, QD
     Route: 048
  8. GEMFIBROZIL [Concomitant]
     Dosage: 1 DF, BID
     Route: 048
  9. NOVOLOG [Concomitant]
     Dosage: 0.5 IU/KG, UNK
     Route: 058
  10. METFORMIN HYDROCHLORIDE [Concomitant]
     Dosage: 1 DF, BID
     Route: 048

REACTIONS (2)
  - ASTHENIA [None]
  - MYALGIA [None]
